FAERS Safety Report 10239718 (Version 2)
Quarter: 2014Q2

REPORT INFORMATION
  Report Type: Spontaneous
  Country: US (occurrence: US)
  Receive Date: 20140616
  Receipt Date: 20140620
  Transmission Date: 20141212
  Serious: Yes (Hospitalization)
  Sender: FDA-Public Use
  Company Number: US-ACTELION-A-NJ2014-100084

PATIENT
  Age: 52 Year
  Sex: Female

DRUGS (1)
  1. VELETRI [Suspect]
     Indication: COR PULMONALE CHRONIC
     Dosage: 39 NG/KG, PER MIN
     Route: 042
     Dates: start: 20110117

REACTIONS (3)
  - Renal failure [Unknown]
  - Hepatic cirrhosis [Unknown]
  - Sepsis [Unknown]
